FAERS Safety Report 7966626-3 (Version None)
Quarter: 2011Q4

REPORT INFORMATION
  Report Type: 
  Country: None (occurrence: None)
  Receive Date: 20111209
  Receipt Date: 20111130
  Transmission Date: 20120403
  Serious: Yes (Other)
  Sender: FDA-Public Use
  Company Number: US-BIOGENIDEC-2011BI045632

PATIENT
  Age: 56 Year
  Sex: Male

DRUGS (3)
  1. AVONEX [Suspect]
     Indication: MULTIPLE SCLEROSIS
     Route: 030
     Dates: start: 20020901, end: 20030101
  2. AVONEX [Suspect]
     Route: 030
     Dates: start: 20111116
  3. AVONEX [Suspect]
     Route: 030
     Dates: start: 20030101, end: 20110801

REACTIONS (1)
  - MALIGNANT MELANOMA [None]
